FAERS Safety Report 8458602-1 (Version None)
Quarter: 2012Q2

REPORT INFORMATION
  Report Type: 
  Country: None (occurrence: None)
  Receive Date: 20120622
  Receipt Date: 20120612
  Transmission Date: 20120825
  Serious: Yes (Other)
  Sender: FDA-Public Use
  Company Number: CN-JNJFOC-20120500401

PATIENT
  Sex: Female
  Weight: 49 kg

DRUGS (2)
  1. MICONAZOLE [Suspect]
     Route: 067
  2. MICONAZOLE [Suspect]
     Indication: VULVOVAGINAL CANDIDIASIS
     Route: 067
     Dates: start: 20110901, end: 20110902

REACTIONS (3)
  - VULVOVAGINAL BURNING SENSATION [None]
  - VULVOVAGINAL DISCOMFORT [None]
  - PYREXIA [None]
